FAERS Safety Report 8764081 (Version 3)
Quarter: 2013Q1

REPORT INFORMATION
  Report Type: Report from Study
  Country: JP (occurrence: JP)
  Receive Date: 20120831
  Receipt Date: 20130115
  Transmission Date: 20140127
  Serious: Yes (Hospitalization, Other)
  Sender: FDA-Public Use
  Company Number: JP-009507513-2012SP019207

PATIENT
  Age: 51 Year
  Sex: Male
  Weight: 71 kg

DRUGS (11)
  1. PEGINTERFERON ALFA-2B [Suspect]
     Indication: CHRONIC HEPATITIS C
     Dosage: 100 MCG, QW
     Route: 058
     Dates: start: 20120202, end: 20120224
  2. REBETOL [Suspect]
     Indication: CHRONIC HEPATITIS C
     Dosage: 800 MG, QD
     Route: 048
     Dates: start: 20120202, end: 20120228
  3. REBETOL [Suspect]
     Dosage: 400 MG, QD
     Route: 048
     Dates: start: 20120229, end: 20120305
  4. TELAVIC [Suspect]
     Indication: CHRONIC HEPATITIS C
     Dosage: 2250 MICROGRAM, QD
     Route: 048
     Dates: start: 20120202, end: 20120228
  5. TELAVIC [Suspect]
     Dosage: 1500 MG, QD
     Route: 048
     Dates: start: 20120229, end: 20120305
  6. MUCOSTA [Concomitant]
     Indication: PROPHYLAXIS
     Dosage: 300 MG, QD
     Route: 048
     Dates: start: 20120217
  7. MUCOSTA [Concomitant]
     Indication: PORTAL HYPERTENSIVE GASTROPATHY
  8. URSO [Concomitant]
     Indication: CHRONIC HEPATITIS C
     Dosage: 600 MG, QD
     Route: 048
     Dates: start: 20120315
  9. GASTER D [Concomitant]
     Indication: PORTAL HYPERTENSIVE GASTROPATHY
     Dosage: 40 MG, QD
     Route: 048
  10. MARZULENE-S [Concomitant]
     Indication: PORTAL HYPERTENSIVE GASTROPATHY
     Dosage: 2.01 G, QD
     Route: 048
  11. DOGMATYL [Concomitant]
     Indication: PROPHYLAXIS
     Dosage: 150 MG, QD
     Route: 048
     Dates: end: 20120530

REACTIONS (7)
  - Epistaxis [Recovered/Resolved]
  - Dysgeusia [Recovered/Resolved]
  - Decreased appetite [Recovered/Resolved]
  - Malaise [Recovered/Resolved]
  - White blood cell count decreased [Not Recovered/Not Resolved]
  - Haemoglobin decreased [Not Recovered/Not Resolved]
  - Pancytopenia [Not Recovered/Not Resolved]
